FAERS Safety Report 5293727-3 (Version None)
Quarter: 2007Q2

REPORT INFORMATION
  Report Type: 
  Country: None (occurrence: None)
  Receive Date: 20070411
  Receipt Date: 20070402
  Transmission Date: 20071010
  Serious: Yes (Hospitalization)
  Sender: FDA-Public Use
  Company Number: FR-PFIZER INC-2007026474

PATIENT
  Age: 52 Year
  Sex: Female

DRUGS (2)
  1. CYTOTEC [Suspect]
     Dates: start: 20070129, end: 20070129
  2. ART 50 [Suspect]
     Indication: ARTHRALGIA
     Dates: start: 20070129, end: 20070129

REACTIONS (3)
  - MUSCLE SPASMS [None]
  - MYALGIA [None]
  - PARAESTHESIA [None]
